FAERS Safety Report 10677469 (Version 2)
Quarter: 2014Q4

REPORT INFORMATION
  Report Type: Spontaneous
  Country: US (occurrence: US)
  Receive Date: 20141227
  Receipt Date: 20141227
  Transmission Date: 20150529
  Serious: Yes (Other)
  Sender: FDA-Public Use
  Company Number: US-BAUSCH-SYM-2014-14630

PATIENT
  Sex: Male

DRUGS (2)
  1. XENAZINE [Suspect]
     Active Substance: TETRABENAZINE
     Dosage: 1 TABLET IN THE MORNING, AND 1.5 TABLETS IN THE EVENING DAILY
     Route: 048
     Dates: start: 20140102
  2. XENAZINE [Suspect]
     Active Substance: TETRABENAZINE
     Indication: HUNTINGTON^S DISEASE
     Dosage: 1 TABLET IN THE MORNING, AND 1.5 TABLETS IN THE EVENING DAILY
     Route: 048
     Dates: start: 201202, end: 201312

REACTIONS (2)
  - Speech disorder [Unknown]
  - Suicidal behaviour [Not Recovered/Not Resolved]
